FAERS Safety Report 9210345 (Version 2)
Quarter: 2013Q2

REPORT INFORMATION
  Report Type: Spontaneous
  Country: US (occurrence: US)
  Receive Date: 20130404
  Receipt Date: 20130516
  Transmission Date: 20140414
  Serious: Yes (Life-Threatening, Hospitalization)
  Sender: FDA-Public Use
  Company Number: US-ROCHE-1210241

PATIENT
  Age: 77 Year
  Sex: Female
  Weight: 58.6 kg

DRUGS (7)
  1. XOLAIR [Suspect]
     Indication: ASTHMA
     Dosage: LAST DOSE RECEIVED PRIOR TO EVENT ON 11/MAR/2013
     Route: 058
     Dates: start: 20110214
  2. LEXAPRO [Concomitant]
     Route: 065
  3. BUPROPION [Concomitant]
     Route: 065
  4. COMBIVENT [Concomitant]
     Indication: ASTHMA
     Dosage: 2 PUFFS
     Route: 055
     Dates: start: 199802
  5. DULERA [Concomitant]
     Indication: ASTHMA
     Dosage: 2 PUFFS
     Route: 055
     Dates: start: 201012
  6. SPIRIVA [Concomitant]
     Indication: ASTHMA
     Route: 055
     Dates: start: 201009
  7. RITALIN [Concomitant]
     Route: 065

REACTIONS (3)
  - Syncope [Recovered/Resolved]
  - Asthma [Recovered/Resolved]
  - Troponin increased [Recovered/Resolved]
